FAERS Safety Report 17011601 (Version 2)
Quarter: 2019Q4

REPORT INFORMATION
  Report Type: Spontaneous
  Country: DE (occurrence: DE)
  Receive Date: 20191108
  Receipt Date: 20191128
  Transmission Date: 20200122
  Serious: Yes (Death)
  Sender: FDA-Public Use
  Company Number: DE-ALLERGAN-1944633US

PATIENT
  Sex: Male
  Weight: 3.5 kg

DRUGS (2)
  1. INSULIN BASAL [Concomitant]
     Active Substance: INSULIN NOS
     Indication: GESTATIONAL DIABETES
  2. CITALOPRAM HYDROBROMIDE - BP [Suspect]
     Active Substance: CITALOPRAM HYDROBROMIDE
     Indication: MATERNAL DRUGS AFFECTING FOETUS
     Route: 064

REACTIONS (5)
  - Heart disease congenital [Fatal]
  - Congenital hepatomegaly [Fatal]
  - Foetal exposure during pregnancy [Fatal]
  - Hypertrophic cardiomyopathy [Fatal]
  - Neonatal respiratory distress syndrome [Fatal]

NARRATIVE: CASE EVENT DATE: 20190915
